FAERS Safety Report 8854339 (Version 2)
Quarter: 2015Q3

REPORT INFORMATION
  Report Type: Report from Study
  Country: US (occurrence: US)
  Receive Date: 20121023
  Receipt Date: 20150909
  Transmission Date: 20151125
  Serious: Yes (Death)
  Sender: FDA-Public Use
  Company Number: US-ROCHE-1135572

PATIENT
  Sex: Male

DRUGS (6)
  1. RAPTIVA [Suspect]
     Active Substance: EFALIZUMAB
     Indication: PUSTULAR PSORIASIS
  2. CORTISONE [Concomitant]
     Active Substance: CORTISONE\HYDROCORTISONE
     Route: 048
  3. PUVA [Concomitant]
     Active Substance: PSORALEN
  4. RAPTIVA [Suspect]
     Active Substance: EFALIZUMAB
     Indication: PUSTULAR PSORIASIS
  5. RAPTIVA [Suspect]
     Active Substance: EFALIZUMAB
     Indication: PSORIASIS
     Dosage: PER INJECTION
     Route: 065
  6. RAPTIVA [Suspect]
     Active Substance: EFALIZUMAB
     Indication: PSORIATIC ARTHROPATHY

REACTIONS (1)
  - Death [Fatal]
